FAERS Safety Report 7357533-8 (Version None)
Quarter: 2011Q1

REPORT INFORMATION
  Report Type: 
  Country: None (occurrence: None)
  Receive Date: 20110309
  Receipt Date: 20110221
  Transmission Date: 20110831
  Serious: Yes (Hospitalization)
  Sender: FDA-Public Use
  Company Number: 2011MA001598

PATIENT
  Age: 2 Year
  Sex: Male

DRUGS (1)
  1. PHENOBARBITAL ELIXIR USP (ALPHARMA) (PHENOBARBITAL) [Suspect]
     Indication: CONVULSION
     Dosage: 15 MG;OD;PO
     Route: 048

REACTIONS (25)
  - LIP PAIN [None]
  - NIKOLSKY'S SIGN [None]
  - HAEMOGLOBIN DECREASED [None]
  - ORAL PAIN [None]
  - RASH MACULO-PAPULAR [None]
  - SCAB [None]
  - SKIN LESION [None]
  - STEVENS-JOHNSON SYNDROME [None]
  - ERYTHEMA [None]
  - RESPIRATORY RATE INCREASED [None]
  - COUGH [None]
  - MALAISE [None]
  - MELAENA [None]
  - RED BLOOD CELL SEDIMENTATION RATE INCREASED [None]
  - WHEEZING [None]
  - ALBUMINURIA [None]
  - BLISTER [None]
  - PYREXIA [None]
  - CHILLS [None]
  - EYE PAIN [None]
  - SKIN EXFOLIATION [None]
  - STOMATITIS [None]
  - TOXIC EPIDERMAL NECROLYSIS [None]
  - HEART RATE INCREASED [None]
  - RALES [None]
